FAERS Safety Report 11220621 (Version 1)
Quarter: 2015Q2

REPORT INFORMATION
  Report Type: Spontaneous
  Country: FR (occurrence: FR)
  Receive Date: 20150626
  Receipt Date: 20150626
  Transmission Date: 20150821
  Serious: Yes (Death, Hospitalization)
  Sender: FDA-Public Use
  Company Number: FR-HOSPIRA-2907932

PATIENT
  Age: 76 Year
  Sex: Male
  Weight: 59 kg

DRUGS (14)
  1. CARBOPLATIN HOSPIRA [Suspect]
     Active Substance: CARBOPLATIN
  2. ALIMTA [Suspect]
     Active Substance: PEMETREXED DISODIUM
     Indication: LUNG ADENOCARCINOMA STAGE III
     Dosage: 1 COURSE EVERY 21 DAYS, 4 COURSES AT TOTAL
     Route: 041
     Dates: start: 20150318, end: 20150318
  3. FOLIC ACID. [Concomitant]
     Active Substance: FOLIC ACID
     Indication: PRODUCT USED FOR UNKNOWN INDICATION
     Dosage: 0.8 MG
     Route: 048
     Dates: start: 20150102
  4. CARBOPLATIN HOSPIRA [Suspect]
     Active Substance: CARBOPLATIN
     Indication: LUNG ADENOCARCINOMA STAGE III
     Dosage: 1 COURSE EVERY 21 DAYS, 4 COURSES AT TOTAL
     Route: 041
     Dates: start: 20150318, end: 20150318
  5. ALIMTA [Suspect]
     Active Substance: PEMETREXED DISODIUM
  6. SPIRIVA [Concomitant]
     Active Substance: TIOTROPIUM BROMIDE MONOHYDRATE
     Indication: PRODUCT USED FOR UNKNOWN INDICATION
     Dosage: 0-1-0
     Route: 048
  7. TAHOR [Concomitant]
     Active Substance: ATORVASTATIN CALCIUM
     Indication: PRODUCT USED FOR UNKNOWN INDICATION
     Dosage: 0-0-1
     Route: 048
  8. VITAMIN B12 [Concomitant]
     Active Substance: CYANOCOBALAMIN
     Indication: PRODUCT USED FOR UNKNOWN INDICATION
     Route: 048
     Dates: start: 20150102
  9. BISOCE [Concomitant]
     Active Substance: BISOPROLOL
     Indication: PRODUCT USED FOR UNKNOWN INDICATION
     Dosage: 1-0-0
     Route: 048
  10. CARBOPLATIN HOSPIRA [Suspect]
     Active Substance: CARBOPLATIN
  11. PLAVIX [Concomitant]
     Active Substance: CLOPIDOGREL BISULFATE
     Indication: PRODUCT USED FOR UNKNOWN INDICATION
     Dosage: 0-1-0
     Route: 048
  12. ALIMTA [Suspect]
     Active Substance: PEMETREXED DISODIUM
  13. DIAMICRON [Concomitant]
     Active Substance: GLICLAZIDE
     Indication: PRODUCT USED FOR UNKNOWN INDICATION
     Dosage: 0-1/2-0
     Route: 048
  14. JANUMET [Concomitant]
     Active Substance: METFORMIN HYDROCHLORIDE\SITAGLIPTIN PHOSPHATE
     Indication: PRODUCT USED FOR UNKNOWN INDICATION
     Dosage: 0-1-1
     Route: 048

REACTIONS (8)
  - Cardiac arrest [Fatal]
  - Oxygen saturation decreased [Unknown]
  - Anaemia [Unknown]
  - Asthenia [Unknown]
  - Bicytopenia [Not Recovered/Not Resolved]
  - Dysphagia [Unknown]
  - Hyperthermia [Unknown]
  - Haemoptysis [Unknown]

NARRATIVE: CASE EVENT DATE: 20150319
